FAERS Safety Report 10349726 (Version 1)
Quarter: 2014Q3

REPORT INFORMATION
  Report Type: Report from Study
  Country: GR (occurrence: GR)
  Receive Date: 20140730
  Receipt Date: 20140730
  Transmission Date: 20150326
  Serious: Yes (Death, Other)
  Sender: FDA-Public Use
  Company Number: PHHY2014GR092546

PATIENT

DRUGS (4)
  1. MADOPAR [Concomitant]
     Active Substance: BENSERAZIDE HYDROCHLORIDE\LEVODOPA
     Dosage: UNK UKN, UNK (4)
  2. VENLAFAXINE [Concomitant]
     Active Substance: VENLAFAXINE HYDROCHLORIDE
     Dosage: 300 MG, UNK
  3. ZYPREXA [Concomitant]
     Active Substance: OLANZAPINE
     Dosage: 15 MG, UNK
  4. EXELON [Suspect]
     Active Substance: RIVASTIGMINE TARTRATE
     Indication: PARKINSON^S DISEASE
     Dosage: 9 MG, UNK

REACTIONS (4)
  - Depression [Unknown]
  - Parkinsonism [Unknown]
  - Death [Fatal]
  - Muscle rigidity [Unknown]
